FAERS Safety Report 13961119 (Version 13)
Quarter: 2020Q3

REPORT INFORMATION
  Report Type: Spontaneous
  Country: JP (occurrence: JP)
  Receive Date: 20170912
  Receipt Date: 20200901
  Transmission Date: 20201102
  Serious: Yes (Death, Hospitalization, Other)
  Sender: FDA-Public Use
  Company Number: JP-BRISTOL-MYERS SQUIBB COMPANY-BMS-2017-080601

PATIENT
  Age: 62 Year
  Sex: Male
  Weight: 53.5 kg

DRUGS (2)
  1. OPDIVO [Suspect]
     Active Substance: NIVOLUMAB
     Indication: HEAD AND NECK CANCER
     Dosage: 3 MG/KG, UNK
     Route: 041
  2. CLOPIDOGREL SULFATE [Concomitant]
     Active Substance: CLOPIDOGREL BISULFATE
     Indication: CEREBRAL INFARCTION
     Dosage: UNK
     Route: 048

REACTIONS (7)
  - Diarrhoea [Unknown]
  - Pyrexia [Unknown]
  - Erythema [Unknown]
  - Lymphocyte morphology abnormal [Fatal]
  - Drug-induced liver injury [Fatal]
  - Pneumonia cytomegaloviral [Fatal]
  - Infection [Fatal]

NARRATIVE: CASE EVENT DATE: 2017
